FAERS Safety Report 14516987 (Version 3)
Quarter: 2018Q1

REPORT INFORMATION
  Report Type: Report from Study
  Country: US (occurrence: US)
  Receive Date: 20180212
  Receipt Date: 20180308
  Transmission Date: 20180509
  Serious: Yes (Hospitalization)
  Sender: FDA-Public Use
  Company Number: US-GILEAD-2018-0320072

PATIENT
  Age: 48 Year
  Sex: Female

DRUGS (11)
  1. PEPCID                             /00305201/ [Concomitant]
     Active Substance: ALUMINUM HYDROXIDE\MAGNESIUM CARBONATE
  2. COUMADIN [Concomitant]
     Active Substance: WARFARIN SODIUM
  3. FUROSEMIDE. [Concomitant]
     Active Substance: FUROSEMIDE
  4. CALCIUM [Concomitant]
     Active Substance: CALCIUM
  5. NAPROXEN. [Concomitant]
     Active Substance: NAPROXEN
  6. PROPAFENONE. [Concomitant]
     Active Substance: PROPAFENONE
  7. CORTEF [Concomitant]
     Active Substance: HYDROCORTISONE
  8. MULTI-VITAMINS VITAFIT [Concomitant]
     Active Substance: VITAMINS
  9. PROAIR HFA [Concomitant]
     Active Substance: ALBUTEROL SULFATE
  10. HYDROCORT                          /00028602/ [Concomitant]
  11. AMBRISENTAN [Suspect]
     Active Substance: AMBRISENTAN
     Indication: PULMONARY HYPERTENSION
     Dosage: 5 MG, QD
     Route: 065
     Dates: start: 20071107

REACTIONS (2)
  - Fluid overload [Unknown]
  - Dyspnoea [Not Recovered/Not Resolved]
